FAERS Safety Report 5883856-5 (Version None)
Quarter: 2008Q3

REPORT INFORMATION
  Report Type: 
  Country: None (occurrence: None)
  Receive Date: 20080915
  Receipt Date: 20080904
  Transmission Date: 20090109
  Serious: Yes (Hospitalization)
  Sender: FDA-Public Use
  Company Number: A0747324A

PATIENT
  Age: 68 Year
  Sex: Male
  Weight: 80.5 kg

DRUGS (7)
  1. AVANDIA [Suspect]
     Dosage: 4MG TWICE PER DAY
     Route: 048
     Dates: start: 20000101, end: 20070101
  2. METFORMIN HCL [Concomitant]
     Dates: start: 19960101
  3. DIABETA [Concomitant]
     Dates: start: 19960101, end: 20070101
  4. ASPIRIN [Concomitant]
     Dates: start: 20030101
  5. SIMVASTATIN [Concomitant]
     Dates: start: 20030101
  6. VYTORIN [Concomitant]
     Dates: start: 20041001
  7. ALPRAZOLAM [Concomitant]
     Dates: start: 20030401

REACTIONS (5)
  - CEREBROVASCULAR ACCIDENT [None]
  - CHEST PAIN [None]
  - CORONARY ARTERY DISEASE [None]
  - MYOCARDIAL INFARCTION [None]
  - VISION BLURRED [None]
